FAERS Safety Report 18204354 (Version 1)
Quarter: 2020Q3

REPORT INFORMATION
  Report Type: Spontaneous
  Country: ES (occurrence: ES)
  Receive Date: 20200828
  Receipt Date: 20200828
  Transmission Date: 20201103
  Serious: Yes (Disabling, Other)
  Sender: FDA-Public Use
  Company Number: ES-AUROBINDO-AUR-APL-2020-044733

PATIENT
  Age: 38 Year
  Sex: Female

DRUGS (1)
  1. BUPIVACAINE. [Suspect]
     Active Substance: BUPIVACAINE
     Indication: ANAESTHESIA
     Dosage: UNK
     Route: 008

REACTIONS (5)
  - Maternal exposure during pregnancy [Unknown]
  - Meningitis aseptic [Unknown]
  - Neurotoxicity [Unknown]
  - Anterograde amnesia [Not Recovered/Not Resolved]
  - Central nervous system lesion [Unknown]
